FAERS Safety Report 8090239-9 (Version None)
Quarter: 2012Q1

REPORT INFORMATION
  Report Type: 
  Country: None (occurrence: None)
  Receive Date: 20120129
  Receipt Date: 20111108
  Transmission Date: 20120608
  Serious: No
  Sender: FDA-Public Use
  Company Number: US-ABBOTT-11P-163-0872448-00

PATIENT
  Age: 62 Year
  Sex: Male

DRUGS (24)
  1. FLUOXETINE [Concomitant]
     Indication: DEPRESSION
  2. JANUVIA [Concomitant]
     Indication: DIABETES MELLITUS
  3. HYDROCODONE BITARTRATE [Concomitant]
     Indication: BACK PAIN
     Dosage: 10/650 EVERY 4-6 HOURS AS NEEDED
  4. PROAIR HFA [Concomitant]
     Indication: CHRONIC OBSTRUCTIVE PULMONARY DISEASE
  5. DILTIAZEM HCL [Concomitant]
     Indication: BLOOD PRESSURE
  6. AZASAN [Concomitant]
     Indication: CROHN'S DISEASE
  7. DUONEB [Concomitant]
     Indication: CHRONIC OBSTRUCTIVE PULMONARY DISEASE
  8. OXYGEN [Concomitant]
     Indication: PRODUCT USED FOR UNKNOWN INDICATION
     Dosage: AT NIGHT
  9. NASACORT [Concomitant]
     Indication: PRODUCT USED FOR UNKNOWN INDICATION
  10. OMEPRAZOLE [Concomitant]
     Indication: GASTROOESOPHAGEAL REFLUX DISEASE
  11. CYANOCOBALAMIN [Concomitant]
     Indication: CARDIAC DISORDER
     Dosage: 2/8/25MG
  12. LOVAZA [Concomitant]
     Indication: BLOOD CHOLESTEROL INCREASED
  13. ACETAMINOPHEN [Concomitant]
     Indication: BACK PAIN
  14. POTASSIUM [Concomitant]
     Indication: PRODUCT USED FOR UNKNOWN INDICATION
  15. DILTIAZEM HCL [Concomitant]
     Indication: VENTRICULAR EXTRASYSTOLES
  16. PLAVIX [Concomitant]
     Indication: PRODUCT USED FOR UNKNOWN INDICATION
  17. FUROSEMIDE [Concomitant]
     Indication: CARDIAC FAILURE CONGESTIVE
  18. HUMIRA [Suspect]
     Indication: CROHN'S DISEASE
     Dates: start: 20111003
  19. METFFORMIN HYDROCHLORIDE [Concomitant]
     Indication: DIABETES MELLITUS
  20. FLOMAX [Concomitant]
     Indication: PROSTATOMEGALY
  21. MULTI-VITAMIN [Concomitant]
     Indication: PRODUCT USED FOR UNKNOWN INDICATION
     Dosage: DAILY
  22. FUROSEMIDE [Concomitant]
     Indication: FLUID RETENTION
     Dosage: DAILY AS NEEDED
  23. GEMFIBROZIL [Concomitant]
     Indication: BLOOD CHOLESTEROL INCREASED
  24. IMODIUM A-D [Concomitant]
     Indication: PRODUCT USED FOR UNKNOWN INDICATION

REACTIONS (1)
  - BACK PAIN [None]
